FAERS Safety Report 8089271-0 (Version None)
Quarter: 2012Q1

REPORT INFORMATION
  Report Type: 
  Country: None (occurrence: None)
  Receive Date: 20120128
  Receipt Date: 20110722
  Transmission Date: 20120608
  Serious: Yes (Other)
  Sender: FDA-Public Use
  Company Number: US-ABBOTT-11P-163-0717469-00

PATIENT
  Age: 64 Year
  Sex: Female

DRUGS (5)
  1. FUROSEMIDE [Concomitant]
     Indication: HYPERTENSION
     Dosage: 20 MG DAILY DOSE
     Route: 048
  2. HUMIRA [Suspect]
     Indication: PSORIASIS
     Route: 058
     Dates: start: 20100501
  3. SIMVASTATIN [Concomitant]
     Indication: BLOOD CHOLESTEROL INCREASED
     Dosage: 10 MG DAILY DOSE
     Route: 048
  4. HUMIRA [Suspect]
     Route: 058
     Dates: start: 20110101
  5. LISINOPRIL [Concomitant]
     Indication: HYPERTENSION
     Dosage: 30 MG DAILY DOSE
     Route: 048

REACTIONS (11)
  - BACK PAIN [None]
  - PSORIASIS [None]
  - NECK PAIN [None]
  - WEIGHT ABNORMAL [None]
  - FACIAL OPERATION [None]
  - DRUG INEFFECTIVE [None]
  - ACTIVITIES OF DAILY LIVING IMPAIRED [None]
  - BLOOD CHOLESTEROL INCREASED [None]
  - SKIN EXFOLIATION [None]
  - SKIN FISSURES [None]
  - PAIN IN EXTREMITY [None]
